FAERS Safety Report 18339686 (Version 1)
Quarter: 2020Q4

REPORT INFORMATION
  Report Type: Spontaneous
  Country: US (occurrence: US)
  Receive Date: 20201002
  Receipt Date: 20201002
  Transmission Date: 20210113
  Serious: Yes (Other)
  Sender: FDA-Public Use
  Company Number: US-COOPERSURGICAL, INC.-US-2020CPS002355

PATIENT
  Age: 19 Year
  Sex: Female
  Weight: 68.27 kg

DRUGS (2)
  1. DRYSOL [Concomitant]
     Active Substance: ALUMINUM CHLORIDE
     Indication: HYPERHIDROSIS
     Dosage: UNK
     Route: 065
     Dates: start: 201904
  2. PARAGARD T 380A [Suspect]
     Active Substance: COPPER
     Indication: CONTRACEPTION
     Dosage: UNK
     Route: 015
     Dates: start: 20191125

REACTIONS (3)
  - Device expulsion [Not Recovered/Not Resolved]
  - Ovarian cyst [Unknown]
  - Pelvic pain [Unknown]

NARRATIVE: CASE EVENT DATE: 2019
